FAERS Safety Report 6158333-7 (Version None)
Quarter: 2009Q2

REPORT INFORMATION
  Report Type: 
  Country: None (occurrence: None)
  Receive Date: 20090417
  Receipt Date: 20090413
  Transmission Date: 20091009
  Serious: Yes (Death, Hospitalization)
  Sender: FDA-Public Use
  Company Number: US-BIOGENIDEC-2009BI008329

PATIENT
  Age: 62 Year
  Sex: Female

DRUGS (18)
  1. TYSABRI [Suspect]
     Indication: CROHN'S DISEASE
     Route: 042
     Dates: start: 20090130, end: 20090227
  2. TUMS [Concomitant]
     Indication: DRUG USE FOR UNKNOWN INDICATION
     Route: 048
  3. VITAMIN B-12 [Concomitant]
     Indication: ANAEMIA
     Route: 058
  4. VITAMIN D [Concomitant]
     Indication: DRUG USE FOR UNKNOWN INDICATION
  5. PROTONIX [Concomitant]
     Indication: DRUG USE FOR UNKNOWN INDICATION
  6. VITAMIN B COMPLEX WITH VITAMIN C [Concomitant]
     Indication: DRUG USE FOR UNKNOWN INDICATION
     Route: 048
  7. LOMOTIL [Concomitant]
     Indication: DRUG USE FOR UNKNOWN INDICATION
  8. FERROUS SULFATE TAB [Concomitant]
     Indication: ANAEMIA
     Route: 048
  9. PREDNISONE [Concomitant]
     Indication: DRUG USE FOR UNKNOWN INDICATION
     Route: 048
  10. MAGNESIUM OXIDE [Concomitant]
     Indication: DRUG USE FOR UNKNOWN INDICATION
  11. ZESTRIL [Concomitant]
     Indication: DRUG USE FOR UNKNOWN INDICATION
  12. PERCOCET [Concomitant]
     Indication: DRUG USE FOR UNKNOWN INDICATION
  13. TYLENOL [Concomitant]
     Indication: DRUG USE FOR UNKNOWN INDICATION
  14. AMBIEN [Concomitant]
     Indication: DRUG USE FOR UNKNOWN INDICATION
  15. NITROSTAT [Concomitant]
     Indication: DRUG USE FOR UNKNOWN INDICATION
  16. PEPPERMINT OIL [Concomitant]
     Indication: OESOPHAGEAL SPASM
  17. LASIX [Concomitant]
     Indication: URINE OUTPUT INCREASED
  18. EPOGEN [Concomitant]
     Indication: ANAEMIA
     Route: 058

REACTIONS (18)
  - ATELECTASIS [None]
  - CLOSTRIDIUM DIFFICILE COLITIS [None]
  - DERMATITIS BULLOUS [None]
  - ECCHYMOSIS [None]
  - FAILURE TO THRIVE [None]
  - GASTRITIS [None]
  - GASTROSTOMY TUBE INSERTION [None]
  - GENERALISED OEDEMA [None]
  - HAEMATURIA [None]
  - HEPARIN-INDUCED THROMBOCYTOPENIA [None]
  - IMPAIRED GASTRIC EMPTYING [None]
  - MALNUTRITION [None]
  - MYOCARDIAL ISCHAEMIA [None]
  - OEDEMA [None]
  - PLEURAL EFFUSION [None]
  - RENAL FAILURE CHRONIC [None]
  - SEPSIS [None]
  - SKIN ULCER [None]
